FAERS Safety Report 22004851 (Version 2)
Quarter: 2023Q2

REPORT INFORMATION
  Report Type: Spontaneous
  Country: US (occurrence: US)
  Receive Date: 20230217
  Receipt Date: 20230410
  Transmission Date: 20230722
  Serious: Yes (Hospitalization, Other)
  Sender: FDA-Public Use
  Company Number: US-GSKCCFUS-Case-01626344_AE-91846

PATIENT

DRUGS (1)
  1. BREO ELLIPTA [Suspect]
     Active Substance: FLUTICASONE FUROATE\VILANTEROL TRIFENATATE
     Indication: Product used for unknown indication
     Dosage: 1 PUFF(S), QD 200/25 MCG
     Route: 055

REACTIONS (4)
  - Influenza [Recovered/Resolved]
  - Pneumonia [Recovered/Resolved]
  - Ageusia [Not Recovered/Not Resolved]
  - Wrong technique in device usage process [Unknown]
